FAERS Safety Report 16310804 (Version 2)
Quarter: 2019Q2

REPORT INFORMATION
  Report Type: Spontaneous
  Country: US (occurrence: US)
  Receive Date: 20190514
  Receipt Date: 20190605
  Transmission Date: 20190711
  Serious: Yes (Hospitalization, Other)
  Sender: FDA-Public Use
  Company Number: US-PFIZER INC-2019202712

PATIENT
  Age: 72 Year
  Sex: Female
  Weight: 81.63 kg

DRUGS (1)
  1. XELJANZ XR [Suspect]
     Active Substance: TOFACITINIB CITRATE
     Indication: RHEUMATOID ARTHRITIS
     Dosage: 11 MG, 1X/DAY
     Route: 048
     Dates: start: 201810

REACTIONS (11)
  - Blood urea decreased [Unknown]
  - Chest pain [Unknown]
  - Regurgitation [Unknown]
  - Renal disorder [Unknown]
  - Thrombosis [Recovering/Resolving]
  - Peripheral swelling [Unknown]
  - Pain in extremity [Unknown]
  - Cystitis [Unknown]
  - Fluid retention [Unknown]
  - Abdominal distension [Unknown]
  - Weight increased [Unknown]

NARRATIVE: CASE EVENT DATE: 2019
